APPROVED DRUG PRODUCT: PITAVASTATIN CALCIUM
Active Ingredient: PITAVASTATIN CALCIUM
Strength: EQ 1MG BASE
Dosage Form/Route: TABLET;ORAL
Application: A205961 | Product #001 | TE Code: AB
Applicant: AMNEAL PHARMACEUTICALS OF NY LLC
Approved: Aug 20, 2024 | RLD: No | RS: No | Type: RX